FAERS Safety Report 24526884 (Version 1)
Quarter: 2024Q4

REPORT INFORMATION
  Report Type: Report from Study
  Country: US (occurrence: US)
  Receive Date: 20241021
  Receipt Date: 20241021
  Transmission Date: 20250115
  Serious: No
  Sender: ROCHE
  Company Number: US-ROCHE-3572636

PATIENT
  Age: 85 Year
  Sex: Female

DRUGS (2)
  1. ZELBORAF [Suspect]
     Active Substance: VEMURAFENIB
     Indication: Thyroid cancer
     Dosage: TAKE 2 TABLET(S) BY MOUTH TWICE A DAY IF TOLERATED, INCREASE TO TAKE 3 TABLET(S) BY MOUTH TWICE A DA
     Route: 048
  2. COTELLIC [Suspect]
     Active Substance: COBIMETINIB
     Indication: Thyroid cancer
     Dosage: 1 TABLET
     Route: 048

REACTIONS (4)
  - Off label use [Unknown]
  - Off label use [Unknown]
  - No adverse event [Unknown]
  - Wrong technique in product usage process [Unknown]
